FAERS Safety Report 7840979-9 (Version None)
Quarter: 2011Q4

REPORT INFORMATION
  Report Type: 
  Country: None (occurrence: None)
  Receive Date: 20111021
  Receipt Date: 20111021
  Transmission Date: 20120403
  Serious: No
  Sender: FDA-Public Use
  Company Number: None

PATIENT
  Sex: Female
  Weight: 52.1637 kg

DRUGS (1)
  1. DOXYCYCLINE HYCLATE [Suspect]
     Indication: SINUSITIS
     Dosage: 1 TWICE DAILY
     Dates: start: 20110930, end: 20111003

REACTIONS (2)
  - CARDIAC FLUTTER [None]
  - DYSPNOEA [None]
